FAERS Safety Report 9656060 (Version 1)
Quarter: 2013Q4

REPORT INFORMATION
  Report Type: Spontaneous
  Country: US (occurrence: US)
  Receive Date: 20131030
  Receipt Date: 20131030
  Transmission Date: 20140711
  Serious: Yes (Other)
  Sender: FDA-Public Use
  Company Number: US-JNJFOC-20131014814

PATIENT
  Age: 3 Decade
  Sex: 0

DRUGS (4)
  1. METHYLPHENIDATE HYDROCHLORIDE [Suspect]
     Indication: DRUG ABUSE
     Route: 048
  2. ADDERALL [Suspect]
     Indication: DRUG ABUSE
     Route: 065
  3. ECSTASY [Suspect]
     Indication: DRUG ABUSE
     Route: 065
  4. COCAINE [Suspect]
     Indication: DRUG ABUSE
     Route: 065

REACTIONS (1)
  - Drug abuse [Unknown]
